FAERS Safety Report 7619621-8 (Version None)
Quarter: 2011Q3

REPORT INFORMATION
  Report Type: 
  Country: None (occurrence: None)
  Receive Date: 20110719
  Receipt Date: 20091122
  Transmission Date: 20111222
  Serious: Yes (Death, Other)
  Sender: FDA-Public Use
  Company Number: US-BAYER-200940537NA

PATIENT
  Age: 74 Year
  Sex: Female
  Weight: 73 kg

DRUGS (18)
  1. TRASYLOL [Suspect]
     Indication: PRODUCT USED FOR UNKNOWN INDICATION
     Dosage: 1 ML INITIAL TEST DOSE
     Route: 042
     Dates: start: 19980918
  2. AMICAR [Concomitant]
     Dosage: UNK
     Dates: start: 19980917
  3. RED BLOOD CELLS [Concomitant]
     Dosage: 1 U, ONCE
     Route: 042
     Dates: start: 19980919
  4. LASIX [Concomitant]
     Dosage: 20 MG
     Route: 042
     Dates: start: 19980918
  5. COUMADIN [Concomitant]
     Dosage: UNK
     Route: 048
  6. NORMODYNE [Concomitant]
     Dosage: 200 MG, BID
     Route: 048
  7. AMICAR [Concomitant]
     Dosage: UNK
     Dates: start: 19980918
  8. CORLOPAM [Concomitant]
     Dosage: 0.05 MG/KG/MIN
     Route: 042
     Dates: start: 19980919
  9. CARDIZEM CD [Concomitant]
     Dosage: 240 MG, QD
     Route: 048
  10. IMDUR [Concomitant]
     Dosage: 30 MG, QD
     Route: 048
     Dates: start: 19970915
  11. PRIMACOR [Concomitant]
     Dosage: 0.5/ HOUR
     Route: 042
     Dates: start: 19980919
  12. LASIX [Concomitant]
     Dosage: 40 MG
     Route: 042
     Dates: start: 19980918
  13. SODIUM BICARBONATE [Concomitant]
     Dosage: 2 AMPULES
     Route: 042
     Dates: start: 19980919, end: 19980919
  14. LEVOPHED [Concomitant]
     Dosage: 0.1 / HOUR
     Route: 042
     Dates: start: 19980919
  15. EPINEPHRINE [Concomitant]
     Dosage: 0.12/ HOUR
     Route: 042
     Dates: start: 19980919
  16. ASPIRIN [Concomitant]
     Dosage: 1 TABLET DAILY
     Route: 048
     Dates: start: 19600101
  17. CORLOPAM [Concomitant]
     Route: 048
  18. IBUPROFEN [Concomitant]
     Dosage: AS NEEDED
     Route: 048

REACTIONS (13)
  - DEATH [None]
  - ANXIETY [None]
  - FEAR [None]
  - PAIN [None]
  - INJURY [None]
  - EMOTIONAL DISTRESS [None]
  - UNEVALUABLE EVENT [None]
  - RENAL IMPAIRMENT [None]
  - RENAL INJURY [None]
  - ANHEDONIA [None]
  - RENAL FAILURE [None]
  - MULTI-ORGAN FAILURE [None]
  - STRESS [None]
